FAERS Safety Report 20441140 (Version 1)
Quarter: 2022Q1

REPORT INFORMATION
  Report Type: Report from Study
  Country: US (occurrence: None)
  Receive Date: 20220208
  Receipt Date: 20220208
  Transmission Date: 20220423
  Serious: Yes (Other)
  Sender: FDA-Public Use
  Company Number: US-Merck Healthcare KGaA-9297400

PATIENT
  Sex: Female

DRUGS (1)
  1. MAVENCLAD [Suspect]
     Active Substance: CLADRIBINE
     Indication: Multiple sclerosis
     Dosage: YEAR ONE THERAPY
     Route: 048
     Dates: start: 20210603

REACTIONS (6)
  - Endocrine ophthalmopathy [Unknown]
  - Eye movement disorder [Unknown]
  - Diarrhoea [Unknown]
  - Anal incontinence [Unknown]
  - Gastric disorder [Unknown]
  - Depressed mood [Unknown]
